FAERS Safety Report 6091552-7 (Version None)
Quarter: 2009Q1

REPORT INFORMATION
  Report Type: 
  Country: None (occurrence: None)
  Receive Date: 20090225
  Receipt Date: 20080123
  Transmission Date: 20090719
  Serious: No
  Sender: FDA-Public Use
  Company Number: A0615767A

PATIENT
  Sex: Female

DRUGS (5)
  1. VALTREX [Suspect]
     Indication: GENITAL HERPES
     Dosage: 500MG PER DAY
     Route: 048
     Dates: end: 20060801
  2. VITAMIN [Concomitant]
  3. HERBS [Concomitant]
  4. LEXAPRO [Concomitant]
  5. NAPROXEN [Concomitant]

REACTIONS (11)
  - ABDOMINAL DISTENSION [None]
  - ABDOMINAL PAIN [None]
  - BLADDER DISCOMFORT [None]
  - BLADDER DISORDER [None]
  - BLOOD URINE PRESENT [None]
  - DIZZINESS [None]
  - MICTURITION URGENCY [None]
  - NAUSEA [None]
  - PAIN [None]
  - POLLAKIURIA [None]
  - URINARY INCONTINENCE [None]
